FAERS Safety Report 22596291 (Version 1)
Quarter: 2023Q2

REPORT INFORMATION
  Report Type: Spontaneous
  Country: US (occurrence: None)
  Receive Date: 20230613
  Receipt Date: 20230613
  Transmission Date: 20230721
  Serious: Yes (Other)
  Sender: FDA-Public Use
  Company Number: 2023A131933

PATIENT
  Age: 24230 Day
  Sex: Female
  Weight: 75.3 kg

DRUGS (30)
  1. OMEPRAZOLE [Suspect]
     Active Substance: OMEPRAZOLE
     Indication: Gastrooesophageal reflux disease
     Dates: start: 2009
  2. DEXILANT [Suspect]
     Active Substance: DEXLANSOPRAZOLE
     Indication: Gastrooesophageal reflux disease
     Dates: start: 2011, end: 2015
  3. PREVACID [Suspect]
     Active Substance: LANSOPRAZOLE
     Indication: Gastrooesophageal reflux disease
     Dates: start: 2006
  4. OMEPRAZOLE\SODIUM BICARBONATE [Suspect]
     Active Substance: OMEPRAZOLE\SODIUM BICARBONATE
  5. NAPROXEN [Concomitant]
     Active Substance: NAPROXEN
     Indication: Arthralgia
     Dates: start: 200607, end: 201301
  6. TRAMADOL [Concomitant]
     Active Substance: TRAMADOL
     Indication: Pain
     Dates: start: 201301
  7. ACYCLOVIR [Concomitant]
     Active Substance: ACYCLOVIR
     Indication: Antiviral treatment
     Dates: start: 201112, end: 201212
  8. DOXYCYCLINE [Concomitant]
     Active Substance: DOXYCYCLINE
     Indication: Cough
     Dates: start: 20171227
  9. CEFALEXIA [Concomitant]
     Indication: Cough
     Dates: start: 20180124
  10. ACETAMINOPHEN [Concomitant]
     Active Substance: ACETAMINOPHEN
     Indication: Pain
  11. VITAMINS [Concomitant]
     Active Substance: VITAMINS
     Indication: Medical diet
     Dates: end: 2013
  12. FISH OIL [Concomitant]
     Active Substance: FISH OIL
     Indication: Cardiac disorder
  13. IRON [Concomitant]
     Active Substance: IRON
  14. ALEVE [Concomitant]
     Active Substance: NAPROXEN SODIUM
     Indication: Arthralgia
     Dates: end: 2013
  15. CALCIUM [Concomitant]
     Active Substance: CALCIUM
     Indication: Bone disorder
     Dates: end: 2013
  16. ZANTAC [Concomitant]
     Active Substance: RANITIDINE HYDROCHLORIDE
     Dates: start: 2015
  17. FAMOTIDINE [Concomitant]
     Active Substance: FAMOTIDINE
     Dates: start: 2008, end: 2011
  18. ROLAIDS [Concomitant]
     Active Substance: CALCIUM CARBONATE\MAGNESIUM HYDROXIDE
     Dates: start: 2005, end: 2011
  19. AMBIEN [Concomitant]
     Active Substance: ZOLPIDEM TARTRATE
  20. LEVOXYL [Concomitant]
     Active Substance: LEVOTHYROXINE SODIUM
  21. LIPITOR [Concomitant]
     Active Substance: ATORVASTATIN CALCIUM
  22. FISH OIL [Concomitant]
     Active Substance: FISH OIL
  23. ANASTROZOLE [Concomitant]
     Active Substance: ANASTROZOLE
  24. VAGIFEM [Concomitant]
     Active Substance: ESTRADIOL
  25. DETROL [Concomitant]
     Active Substance: TOLTERODINE TARTRATE
  26. ZOVIRAX [Concomitant]
     Active Substance: ACYCLOVIR
  27. SYNTHROID [Concomitant]
     Active Substance: LEVOTHYROXINE SODIUM
  28. MECLIZINE [Concomitant]
     Active Substance: MECLIZINE HYDROCHLORIDE
  29. ZOLPIDEM [Concomitant]
     Active Substance: ZOLPIDEM TARTRATE
  30. CICLOPIROX [Concomitant]
     Active Substance: CICLOPIROX

REACTIONS (2)
  - Renal atrophy [Not Recovered/Not Resolved]
  - Chronic kidney disease [Not Recovered/Not Resolved]

NARRATIVE: CASE EVENT DATE: 20110518
